FAERS Safety Report 6340701-1 (Version None)
Quarter: 2009Q3

REPORT INFORMATION
  Report Type: 
  Country: None (occurrence: None)
  Receive Date: 20090904
  Receipt Date: 20090828
  Transmission Date: 20100115
  Serious: Yes (Death, Other)
  Sender: FDA-Public Use
  Company Number: DE-ROCHE-647141

PATIENT
  Sex: Female
  Weight: 60 kg

DRUGS (3)
  1. METHOXY POLYETHYLENE GLYCOL-EPOETIN BETA [Suspect]
     Route: 042
     Dates: start: 20090112, end: 20090429
  2. EPOETIN BETA [Suspect]
     Dosage: DOSE: 10,000
     Route: 042
     Dates: start: 20080119, end: 20090114
  3. MICARDIS [Concomitant]
     Dosage: DRUG REPORTED: MICARDIS 80

REACTIONS (2)
  - DEATH [None]
  - HAEMOGLOBIN DECREASED [None]
